FAERS Safety Report 20432382 (Version 2)
Quarter: 2022Q1

REPORT INFORMATION
  Report Type: Report from Study
  Country: CA (occurrence: CA)
  Receive Date: 20220204
  Receipt Date: 20220304
  Transmission Date: 20220423
  Serious: Yes (Other)
  Sender: FDA-Public Use
  Company Number: CA-TEVA-2022-CA-2004540

PATIENT
  Age: 72 Year
  Sex: Male
  Weight: 93 kg

DRUGS (14)
  1. CINQAIR [Suspect]
     Active Substance: RESLIZUMAB
     Indication: Asthma
     Dosage: LAST INFUSION DATE: 30-DEC-2021?LAST INFUSION DATE: 25-JAN-2022
     Route: 042
     Dates: start: 20170714
  2. PREDNISONE [Concomitant]
     Active Substance: PREDNISONE
  3. PREDNISONE [Concomitant]
     Active Substance: PREDNISONE
  4. PLAVIX [Concomitant]
     Active Substance: CLOPIDOGREL BISULFATE
  5. MOMETASONE [Concomitant]
     Active Substance: MOMETASONE
  6. ROSUVASTATIN [Concomitant]
     Active Substance: ROSUVASTATIN
  7. QVAR [Concomitant]
     Active Substance: BECLOMETHASONE DIPROPIONATE
  8. VENTOLIN [Concomitant]
     Active Substance: ALBUTEROL SULFATE
  9. ALENDRONATE [Concomitant]
     Active Substance: ALENDRONATE SODIUM
     Dosage: 70 MG
  10. ACYCLOVIR [Concomitant]
     Active Substance: ACYCLOVIR
  11. BISOPROLOL [Concomitant]
     Active Substance: BISOPROLOL
     Route: 048
     Dates: start: 20211123
  12. NITROGLYCERIN [Concomitant]
     Active Substance: NITROGLYCERIN
     Dosage: SPRAY 0.04MG
     Route: 048
     Dates: start: 20211123
  13. Acetylsalicylic acid EC [Concomitant]
     Dosage: 81MG
     Route: 048
     Dates: start: 20211123
  14. CRESTOR [Concomitant]
     Active Substance: ROSUVASTATIN CALCIUM
     Dosage: 40 MG
     Route: 048
     Dates: start: 20211123

REACTIONS (6)
  - Pneumonia [Recovering/Resolving]
  - Pulmonary oedema [Not Recovered/Not Resolved]
  - Dyspnoea [Recovering/Resolving]
  - Weight decreased [Unknown]
  - Incorrect dose administered [Unknown]
  - Adverse event [Not Recovered/Not Resolved]

NARRATIVE: CASE EVENT DATE: 20220101
